APPROVED DRUG PRODUCT: CLOPIDOGREL BISULFATE
Active Ingredient: CLOPIDOGREL BISULFATE
Strength: EQ 75MG BASE
Dosage Form/Route: TABLET;ORAL
Application: A203751 | Product #001 | TE Code: AB
Applicant: AMNEAL PHARMACEUTICALS
Approved: Apr 11, 2014 | RLD: No | RS: No | Type: RX